FAERS Safety Report 5160565-1 (Version None)
Quarter: 2006Q4

REPORT INFORMATION
  Report Type: 
  Country: None (occurrence: None)
  Receive Date: 20061121
  Receipt Date: 20061108
  Transmission Date: 20070319
  Serious: Yes (Death)
  Sender: FDA-Public Use
  Company Number: 2006106914

PATIENT
  Age: 70 Year
  Sex: Female
  Weight: 126.1 kg

DRUGS (5)
  1. SUTENT [Suspect]
     Indication: RENAL CELL CARCINOMA STAGE UNSPECIFIED
     Dosage: 50 MG (50 MG, FREQUENCY: 1Q.D INTERVAL: DAILY)
     Dates: start: 20060607
  2. LORATADINE [Concomitant]
  3. TOPROL-XL [Concomitant]
  4. LIPITOR [Concomitant]
  5. LOTREL (AMLODIPINE, BENAEPRIL HYDROCHLORIDE) [Concomitant]

REACTIONS (4)
  - ALANINE AMINOTRANSFERASE INCREASED [None]
  - ASPARTATE AMINOTRANSFERASE INCREASED [None]
  - BLOOD MAGNESIUM DECREASED [None]
  - CARDIO-RESPIRATORY ARREST [None]
